FAERS Safety Report 5701454-0 (Version None)
Quarter: 2008Q2

REPORT INFORMATION
  Report Type: 
  Country: None (occurrence: None)
  Receive Date: 20080410
  Receipt Date: 20080404
  Transmission Date: 20081010
  Serious: Yes (Life-Threatening, Hospitalization)
  Sender: FDA-Public Use
  Company Number: JP-GILEAD-E2B_00000016

PATIENT
  Sex: Male
  Weight: 78 kg

DRUGS (11)
  1. HEPSERA [Suspect]
     Indication: HEPATITIS B
     Dosage: 10MG PER DAY
     Route: 048
     Dates: start: 20071005, end: 20071023
  2. ZEFIX [Concomitant]
     Indication: HEPATITIS B
     Route: 048
     Dates: start: 20020101
  3. TAKEPRON [Concomitant]
     Indication: REFLUX OESOPHAGITIS
     Dosage: 15MG PER DAY
     Route: 048
     Dates: start: 20070410
  4. LIVACT [Concomitant]
     Indication: BLOOD BILIRUBIN DECREASED
     Dosage: 12.45G PER DAY
     Route: 048
     Dates: start: 20070410
  5. ALDACTONE [Concomitant]
     Indication: OEDEMA
     Dosage: 50MG PER DAY
     Route: 048
     Dates: start: 20070926, end: 20071022
  6. AMOBAN [Concomitant]
     Indication: INSOMNIA
     Dosage: 7.5MG PER DAY
     Route: 048
     Dates: start: 20070929, end: 20071022
  7. GOODMIN [Concomitant]
     Indication: INSOMNIA
     Dosage: .25MG PER DAY
     Route: 048
     Dates: start: 20070929
  8. MEFENAMIC ACID [Concomitant]
     Indication: BACK PAIN
     Route: 048
     Dates: start: 20070929, end: 20071022
  9. INDOMETHACIN [Concomitant]
     Indication: GASTRITIS
     Route: 054
     Dates: start: 20070929, end: 20071022
  10. ENTECAVIR [Concomitant]
     Indication: HEPATITIS B
     Dosage: 1MG PER DAY
     Route: 048
     Dates: start: 20071023, end: 20071030
  11. UNASYN [Concomitant]
     Indication: CHOLECYSTITIS
     Dosage: 6G PER DAY
     Route: 048
     Dates: start: 20071018, end: 20071101

REACTIONS (6)
  - BLOOD CREATININE INCREASED [None]
  - BLOOD UREA INCREASED [None]
  - DYSURIA [None]
  - JAUNDICE [None]
  - PYREXIA [None]
  - RENAL FAILURE ACUTE [None]
